FAERS Safety Report 23454591 (Version 4)
Quarter: 2024Q2

REPORT INFORMATION
  Report Type: Spontaneous
  Country: US (occurrence: US)
  Receive Date: 20240130
  Receipt Date: 20240413
  Transmission Date: 20240716
  Serious: Yes (Other)
  Sender: FDA-Public Use
  Company Number: US-SA-SAC20240119000819

PATIENT
  Age: 52 Year
  Sex: Female

DRUGS (1)
  1. DUPIXENT [Suspect]
     Active Substance: DUPILUMAB
     Indication: Dermatitis atopic
     Dosage: 300 MG, QOW
     Route: 058

REACTIONS (8)
  - Diverticulitis [Unknown]
  - Rash [Recovering/Resolving]
  - Therapeutic response decreased [Recovering/Resolving]
  - Weight increased [Unknown]
  - Eye discharge [Unknown]
  - Scar [Unknown]
  - Contusion [Unknown]
  - Arthralgia [Unknown]
